FAERS Safety Report 4716357-8 (Version None)
Quarter: 2005Q3

REPORT INFORMATION
  Report Type: 
  Country: None (occurrence: None)
  Receive Date: 20050712
  Receipt Date: 20050323
  Transmission Date: 20060218
  Serious: Yes (Hospitalization)
  Sender: FDA-Public Use
  Company Number: PHEH2005US02125

PATIENT
  Age: 47 Year
  Sex: Male

DRUGS (8)
  1. GLEEVEC [Suspect]
     Indication: CHRONIC MYELOID LEUKAEMIA
     Dosage: 400 MG QD ORAL
     Route: 048
     Dates: start: 20010615, end: 20050204
  2. OXYGEN THERAPY (NO INGREDIENTS/SUBSTANCES) [Suspect]
     Dosage: 2L PER NC W ACTIVITY
  3. CELEXA [Concomitant]
  4. FLONASE [Concomitant]
  5. VICODIN [Concomitant]
  6. FLEXERIL [Concomitant]
  7. AMBIEN [Concomitant]
  8. CALCIUM GLUCONATE [Concomitant]

REACTIONS (10)
  - ALVEOLITIS ALLERGIC [None]
  - COUGH [None]
  - CUSHINGOID [None]
  - DERMATITIS ACNEIFORM [None]
  - FEELING JITTERY [None]
  - HYPOXIA [None]
  - IMMUNODEFICIENCY COMMON VARIABLE [None]
  - PNEUMONIA [None]
  - PRODUCTIVE COUGH [None]
  - PRURITUS [None]
